FAERS Safety Report 10309961 (Version 1)
Quarter: 2014Q3

REPORT INFORMATION
  Report Type: Spontaneous
  Country: CA (occurrence: CA)
  Receive Date: 20140717
  Receipt Date: 20140717
  Transmission Date: 20150326
  Serious: Yes (Other)
  Sender: FDA-Public Use
  Company Number: CA-ROCHE-1434621

PATIENT
  Age: 51 Year
  Sex: Female
  Weight: 80 kg

DRUGS (1)
  1. XELODA [Suspect]
     Active Substance: CAPECITABINE
     Indication: PRODUCT USED FOR UNKNOWN INDICATION
     Route: 065

REACTIONS (13)
  - Cardiac disorder [Unknown]
  - Palmar-plantar erythrodysaesthesia syndrome [Unknown]
  - Tic [Unknown]
  - Neuropathy peripheral [Unknown]
  - Eye irritation [Unknown]
  - Fatigue [Unknown]
  - Asthenia [Unknown]
  - Eyelid disorder [Unknown]
  - Influenza like illness [Unknown]
  - Paraesthesia [Unknown]
  - Depression [Unknown]
  - Gastrointestinal pain [Unknown]
  - Rhinitis [Unknown]
